FAERS Safety Report 25098934 (Version 1)
Quarter: 2025Q1

REPORT INFORMATION
  Report Type: Spontaneous
  Country: CH (occurrence: CH)
  Receive Date: 20250320
  Receipt Date: 20250320
  Transmission Date: 20250409
  Serious: Yes (Hospitalization)
  Sender: TEVA
  Company Number: None

PATIENT
  Age: 31 Year
  Sex: Female
  Weight: 60 kg

DRUGS (1)
  1. QUETIAPINE [Suspect]
     Active Substance: QUETIAPINE
     Indication: Sleep disorder
     Dosage: 1 SEPARATED DOSES, QUETIAPINE MEPHA
     Route: 048
     Dates: start: 20250214, end: 20250220

REACTIONS (3)
  - Leukopenia [Recovering/Resolving]
  - Neutropenia [Recovering/Resolving]
  - Lymphopenia [Recovering/Resolving]

NARRATIVE: CASE EVENT DATE: 20250215
